FAERS Safety Report 8513254-7 (Version None)
Quarter: 2012Q3

REPORT INFORMATION
  Report Type: 
  Country: None (occurrence: None)
  Receive Date: 20120716
  Receipt Date: 20120711
  Transmission Date: 20120928
  Serious: Yes (Death)
  Sender: FDA-Public Use
  Company Number: US-BAXTER-2012BAX011326

PATIENT

DRUGS (3)
  1. DEXAMETHASONE [Suspect]
     Indication: AMYLOIDOSIS
     Route: 048
  2. CYTOXAN [Suspect]
     Indication: AMYLOIDOSIS
     Route: 048
  3. LENALIDOMIDE [Suspect]
     Indication: AMYLOIDOSIS
     Route: 048

REACTIONS (1)
  - SMALL INTESTINAL OBSTRUCTION [None]
